FAERS Safety Report 8287615-8 (Version None)
Quarter: 2012Q2

REPORT INFORMATION
  Report Type: 
  Country: None (occurrence: None)
  Receive Date: 20120416
  Receipt Date: 20120410
  Transmission Date: 20120825
  Serious: Yes (Hospitalization, Other)
  Sender: FDA-Public Use
  Company Number: PHHY2012MX031326

PATIENT
  Sex: Male

DRUGS (4)
  1. ONBREZ [Suspect]
     Indication: CHRONIC OBSTRUCTIVE PULMONARY DISEASE
     Dosage: 300 UG, QD
     Dates: start: 20120314
  2. ENALAPRIL MALEATE [Concomitant]
     Indication: CARDIAC DISORDER
  3. FLUTICASONE PROPIONATE/SALMETEROL [Concomitant]
  4. COMBIVENT [Concomitant]

REACTIONS (1)
  - LUNG DISORDER [None]
